FAERS Safety Report 6737899-X (Version None)
Quarter: 2010Q2

REPORT INFORMATION
  Report Type: 
  Country: None (occurrence: None)
  Receive Date: 20100524
  Receipt Date: 20100520
  Transmission Date: 20101027
  Serious: Yes (Other)
  Sender: FDA-Public Use
  Company Number: AT-WYE-G06110510

PATIENT
  Age: 53 Year
  Sex: Female
  Weight: 56 kg

DRUGS (14)
  1. EFFEXOR XR [Suspect]
     Indication: BIPOLAR DISORDER
     Route: 048
     Dates: start: 20100121, end: 20100125
  2. EFFEXOR XR [Suspect]
     Dosage: 150 MG DAILY DOSE
     Route: 048
     Dates: start: 20100126
  3. SEROQUEL [Suspect]
     Dosage: 200 MG DAILY DOSE
  4. ZELDOX [Concomitant]
     Dosage: 20 MG DAILY DOSE
     Dates: start: 20100322, end: 20100322
  5. ZELDOX [Concomitant]
     Dosage: 40 MG DAILY DOSE
     Dates: start: 20100323
  6. THYREX [Concomitant]
     Dosage: 25 ?G DAILY DOSE
  7. LORAZEPAM [Concomitant]
     Dosage: 2 MG DAILY DOSE
     Dates: start: 20100224, end: 20100304
  8. LORAZEPAM [Concomitant]
     Dosage: 1 MG DAILY DOSE
     Dates: start: 20100305, end: 20100313
  9. SOLIAN [Suspect]
     Dosage: 200 MG DAILY DOSE
     Dates: start: 20100226, end: 20100227
  10. SOLIAN [Suspect]
     Dosage: 400 MG DAILY DOSE
     Dates: start: 20100228, end: 20100318
  11. SOLIAN [Suspect]
     Dosage: 200 MG DAILY DOSE
     Dates: start: 20100319, end: 20100321
  12. RISPERDAL [Concomitant]
     Dosage: 2 MG DAILY DOSE
     Dates: start: 20100123, end: 20100225
  13. LAMICTAL [Concomitant]
     Dosage: 50 MG DAILY DOSE
     Dates: start: 20100215, end: 20100314
  14. LAMICTAL [Concomitant]
     Dosage: 100 MG DAILY DOSE
     Dates: start: 20100315

REACTIONS (1)
  - PARKINSONISM [None]
